FAERS Safety Report 7452684-1 (Version None)
Quarter: 2011Q2

REPORT INFORMATION
  Report Type: 
  Country: None (occurrence: None)
  Receive Date: 20110502
  Receipt Date: 20101101
  Transmission Date: 20111010
  Serious: No
  Sender: FDA-Public Use
  Company Number: US-ASTRAZENECA-2010SE51950

PATIENT
  Age: 59 Year
  Sex: Female
  Weight: 48.5 kg

DRUGS (4)
  1. NEXIUM [Suspect]
     Indication: ABDOMINAL DISCOMFORT
     Dosage: TWO TIMES A DAY
     Route: 048
     Dates: start: 20010101, end: 20100901
  2. PRILOSEC [Suspect]
     Indication: ABDOMINAL DISCOMFORT
     Route: 048
     Dates: start: 20010101
  3. METFORMIN HYDROCHLORIDE [Concomitant]
     Indication: DIABETES MELLITUS
  4. ACTOS [Concomitant]

REACTIONS (7)
  - FLATULENCE [None]
  - GASTROINTESTINAL MOTILITY DISORDER [None]
  - CHEST PAIN [None]
  - DRUG INEFFECTIVE [None]
  - ERUCTATION [None]
  - ABDOMINAL DISCOMFORT [None]
  - ABDOMINAL PAIN UPPER [None]
